FAERS Safety Report 6765089-3 (Version None)
Quarter: 2010Q2

REPORT INFORMATION
  Report Type: 
  Country: None (occurrence: None)
  Receive Date: 20100609
  Receipt Date: 20100609
  Transmission Date: 20101027
  Serious: No
  Sender: FDA-Public Use
  Company Number: None

PATIENT
  Age: 53 Year
  Sex: Female
  Weight: 68.0396 kg

DRUGS (1)
  1. LATISSE [Suspect]
     Dosage: BRUSH ON AT NIGHT
     Dates: start: 20090801, end: 20091231

REACTIONS (1)
  - MADAROSIS [None]
